FAERS Safety Report 6818718-X (Version None)
Quarter: 2010Q3

REPORT INFORMATION
  Report Type: 
  Country: None (occurrence: None)
  Receive Date: 20100706
  Receipt Date: 20100622
  Transmission Date: 20110219
  Serious: No
  Sender: FDA-Public Use
  Company Number: US-ELI_LILLY_AND_COMPANY-US201006006580

PATIENT
  Age: 60 Year
  Sex: Female

DRUGS (9)
  1. CYMBALTA [Suspect]
     Indication: FIBROMYALGIA
     Dosage: 60 MG, DAILY (1/D)
  2. OXYCONTIN [Concomitant]
  3. LEFLUNOMIDE [Concomitant]
  4. ROBAXIN [Concomitant]
  5. BACLOFEN [Concomitant]
  6. ATIVAN [Concomitant]
  7. GLUCOSAMINE [Concomitant]
  8. FISH OIL [Concomitant]
  9. VITAMIN E [Concomitant]

REACTIONS (4)
  - CHRONIC OBSTRUCTIVE PULMONARY DISEASE [None]
  - CONDITION AGGRAVATED [None]
  - HEPATIC ENZYME ABNORMAL [None]
  - POLYMYALGIA RHEUMATICA [None]
